FAERS Safety Report 8111325-0 (Version None)
Quarter: 2012Q1

REPORT INFORMATION
  Report Type: 
  Country: None (occurrence: None)
  Receive Date: 20120203
  Receipt Date: 20110902
  Transmission Date: 20120608
  Serious: No
  Sender: FDA-Public Use
  Company Number: US-GLAXOSMITHKLINE-A0943365A

PATIENT
  Sex: Female

DRUGS (5)
  1. MULTI-VITAMIN [Concomitant]
  2. ELIDEL [Concomitant]
  3. LAMICTAL [Suspect]
     Indication: BIPOLAR DISORDER
     Dosage: 200MG PER DAY
     Route: 048
     Dates: start: 20080101
  4. SPIRONOLACTONE [Concomitant]
     Dosage: 20MG PER DAY
  5. XANAX [Concomitant]
     Dosage: 1MG PER DAY

REACTIONS (2)
  - LIP SWELLING [None]
  - RASH [None]
